FAERS Safety Report 19758998 (Version 1)
Quarter: 2021Q3

REPORT INFORMATION
  Report Type: Spontaneous
  Country: NL (occurrence: NL)
  Receive Date: 20210827
  Receipt Date: 20210827
  Transmission Date: 20211014
  Serious: Yes (Death)
  Sender: FDA-Public Use
  Company Number: NL-ALVOGEN-2021-ALVOGEN-117379

PATIENT
  Age: 74 Year
  Sex: Female

DRUGS (1)
  1. OXYCODONE [Suspect]
     Active Substance: OXYCODONE
     Indication: FRACTURE
     Dosage: CAPSULE, 10 MG (MILLIGRAM),
     Dates: start: 20170903

REACTIONS (2)
  - Dyspnoea [Fatal]
  - Hallucination [Fatal]

NARRATIVE: CASE EVENT DATE: 20170903
